FAERS Safety Report 10962459 (Version 1)
Quarter: 2015Q1

REPORT INFORMATION
  Report Type: Spontaneous
  Country: US (occurrence: US)
  Receive Date: 20150327
  Receipt Date: 20150327
  Transmission Date: 20150721
  Serious: Yes (Hospitalization, Other)
  Sender: FDA-Public Use
  Company Number: US-GLAXOSMITHKLINE-US2015039127

PATIENT
  Age: 81 Year
  Sex: Female

DRUGS (16)
  1. FLOVENT [Suspect]
     Active Substance: FLUTICASONE PROPIONATE
     Indication: CHRONIC OBSTRUCTIVE PULMONARY DISEASE
     Dosage: 2 PUFF(S), BID
     Route: 055
     Dates: start: 20140227
  2. APRISO [Concomitant]
     Active Substance: MESALAMINE
  3. ZYRTEC [Concomitant]
     Active Substance: CETIRIZINE HYDROCHLORIDE
  4. ATENOLOL. [Concomitant]
     Active Substance: ATENOLOL
  5. OXYCODONE [Suspect]
     Active Substance: OXYCODONE
     Indication: PAIN
  6. PERFOROMIST [Concomitant]
     Active Substance: FORMOTEROL FUMARATE DIHYDRATE
  7. PROAIR HFA [Concomitant]
     Active Substance: ALBUTEROL SULFATE
  8. PROTONIX [Concomitant]
     Active Substance: PANTOPRAZOLE SODIUM
  9. AZITHROMYCIN [Concomitant]
     Active Substance: AZITHROMYCIN ANHYDROUS
  10. FLOVENT [Suspect]
     Active Substance: FLUTICASONE PROPIONATE
     Dosage: 4 PUFF(S), BID
  11. TYLENOL [Concomitant]
     Active Substance: ACETAMINOPHEN
  12. FUROSEMIDE. [Concomitant]
     Active Substance: FUROSEMIDE
  13. ATORVASTATIN [Concomitant]
     Active Substance: ATORVASTATIN
  14. PREDNISONE. [Concomitant]
     Active Substance: PREDNISONE
  15. SPIRIVA [Concomitant]
     Active Substance: TIOTROPIUM BROMIDE MONOHYDRATE
  16. VITAMIN D3 [Concomitant]
     Active Substance: CHOLECALCIFEROL

REACTIONS (12)
  - Herpes zoster [Recovering/Resolving]
  - Constipation [Recovered/Resolved]
  - Haematochezia [Unknown]
  - Oral candidiasis [Not Recovered/Not Resolved]
  - Burning sensation [Recovering/Resolving]
  - Diarrhoea [Recovered/Resolved]
  - Pain [Unknown]
  - Pruritus [Recovering/Resolving]
  - Chronic obstructive pulmonary disease [Recovered/Resolved]
  - Haemorrhage [Recovering/Resolving]
  - Nasopharyngitis [Not Recovered/Not Resolved]
  - Colitis ulcerative [Recovering/Resolving]

NARRATIVE: CASE EVENT DATE: 201406
